FAERS Safety Report 15884187 (Version 7)
Quarter: 2019Q2

REPORT INFORMATION
  Report Type: Spontaneous
  Country: PL (occurrence: PL)
  Receive Date: 20190129
  Receipt Date: 20190410
  Transmission Date: 20190711
  Serious: Yes (Death, Hospitalization, Other)
  Sender: FDA-Public Use
  Company Number: PL-TAKEDA-2019TUS003031

PATIENT
  Age: 31 Year
  Sex: Male

DRUGS (27)
  1. METHYLPREDNISOLONE. [Suspect]
     Active Substance: METHYLPREDNISOLONE
     Indication: LIVER TRANSPLANT
     Dosage: 120 MILLIGRAM
     Route: 041
     Dates: start: 2015, end: 2015
  2. VELCADE [Suspect]
     Active Substance: BORTEZOMIB
     Indication: CHOLESTASIS
  3. MYCOPHENOLATE MOFETIL. [Suspect]
     Active Substance: MYCOPHENOLATE MOFETIL
     Indication: TRANSPLANT REJECTION
     Dosage: UNK
     Route: 065
     Dates: start: 201411
  4. ANTITHYMOCYTE IMMUNOGLOBULIN [Suspect]
     Active Substance: THYMOCYTE IMMUNE GLOBULIN NOS
     Indication: LIVER FUNCTION TEST ABNORMAL
     Dosage: UNK
     Route: 065
  5. TACROLIMUS. [Suspect]
     Active Substance: TACROLIMUS
     Indication: LIVER TRANSPLANT
  6. COLISTIN                           /00013203/ [Concomitant]
     Active Substance: COLISTIN SULFATE
     Indication: PNEUMOCYSTIS JIROVECII INFECTION
     Dosage: UNK
     Route: 055
  7. PREDNISONE. [Suspect]
     Active Substance: PREDNISONE
     Indication: IMMUNOSUPPRESSANT DRUG THERAPY
     Dosage: UNK
     Route: 065
     Dates: start: 201411
  8. VELCADE [Suspect]
     Active Substance: BORTEZOMIB
     Indication: TRANSPLANT REJECTION
     Dosage: 1.25 MILLIGRAM/SQ. METER, QD
     Route: 042
     Dates: start: 2014
  9. MYCOPHENOLATE MOFETIL. [Suspect]
     Active Substance: MYCOPHENOLATE MOFETIL
     Indication: LIVER TRANSPLANT
     Dosage: 3 GRAM, QD
     Route: 065
     Dates: start: 2015, end: 2015
  10. TACROLIMUS. [Suspect]
     Active Substance: TACROLIMUS
     Indication: TRANSPLANT REJECTION
     Dosage: UNK
     Route: 065
     Dates: start: 2015, end: 2015
  11. LINEZOLID. [Concomitant]
     Active Substance: LINEZOLID
     Indication: PNEUMOCYSTIS JIROVECII INFECTION
     Dosage: 300 MILLIGRAM, BID
     Route: 065
  12. MESALAZINE [Suspect]
     Active Substance: MESALAMINE
     Indication: COLITIS ULCERATIVE
     Dosage: UNK
     Route: 065
     Dates: start: 2015
  13. MYCOPHENOLATE MOFETIL. [Suspect]
     Active Substance: MYCOPHENOLATE MOFETIL
     Indication: IMMUNOSUPPRESSANT DRUG THERAPY
     Dosage: UNK
     Route: 065
     Dates: start: 2015, end: 2015
  14. COLISTIN                           /00013203/ [Concomitant]
     Active Substance: COLISTIN SULFATE
     Dosage: UNK
     Route: 042
  15. VELCADE [Suspect]
     Active Substance: BORTEZOMIB
     Indication: LIVER TRANSPLANT
  16. METHYLPREDNISOLONE. [Suspect]
     Active Substance: METHYLPREDNISOLONE
     Indication: IMMUNOSUPPRESSANT DRUG THERAPY
     Dosage: 2750 MILLIGRAM
     Route: 041
     Dates: start: 201411
  17. METHYLPREDNISOLONE. [Suspect]
     Active Substance: METHYLPREDNISOLONE
     Indication: TRANSPLANT REJECTION
     Dosage: 40 MILLIGRAM, QD
     Route: 041
     Dates: start: 2015
  18. PREDNISONE. [Suspect]
     Active Substance: PREDNISONE
     Indication: TRANSPLANT REJECTION
     Dosage: 30 MILLIGRAM
     Route: 065
     Dates: start: 201411, end: 20150101
  19. PREDNISONE. [Suspect]
     Active Substance: PREDNISONE
     Indication: LIVER TRANSPLANT
  20. ANTITHYMOCYTE IMMUNOGLOBULIN [Suspect]
     Active Substance: THYMOCYTE IMMUNE GLOBULIN NOS
     Indication: TRANSPLANT REJECTION
     Dosage: 800 MILLIGRAM
     Route: 065
     Dates: start: 201411, end: 2014
  21. TACROLIMUS. [Suspect]
     Active Substance: TACROLIMUS
     Indication: IMMUNOSUPPRESSANT DRUG THERAPY
     Dosage: UNK
     Route: 065
     Dates: start: 201411
  22. GANCICLOVIR. [Concomitant]
     Active Substance: GANCICLOVIR
     Indication: ANTIVIRAL PROPHYLAXIS
     Dosage: UNK
     Route: 065
  23. MEROPENEM. [Concomitant]
     Active Substance: MEROPENEM
     Indication: SUPERINFECTION BACTERIAL
     Dosage: UNK
     Route: 065
  24. VELCADE [Suspect]
     Active Substance: BORTEZOMIB
     Indication: TRANSPLANT REJECTION
  25. ANTITHYMOCYTE IMMUNOGLOBULIN [Suspect]
     Active Substance: THYMOCYTE IMMUNE GLOBULIN NOS
     Indication: LIVER TRANSPLANT
  26. BACTRIM [Suspect]
     Active Substance: SULFAMETHOXAZOLE\TRIMETHOPRIM
     Indication: PNEUMOCYSTIS JIROVECII INFECTION
     Dosage: 1440 MILLIGRAM
     Route: 065
  27. VALGANCICLOVIR                     /01542202/ [Concomitant]
     Active Substance: VALGANCICLOVIR HYDROCHLORIDE
     Indication: ANTIVIRAL PROPHYLAXIS
     Dosage: 450 MILLIGRAM, QD
     Route: 065

REACTIONS (22)
  - Liver function test abnormal [Recovering/Resolving]
  - Leukocytosis [Recovering/Resolving]
  - Tachypnoea [Fatal]
  - Pancytopenia [Not Recovered/Not Resolved]
  - Product use in unapproved indication [Unknown]
  - Pulmonary fibrosis [Fatal]
  - Upper respiratory tract infection [Unknown]
  - Thrombocytopenia [Recovering/Resolving]
  - Off label use [Unknown]
  - Neutropenia [Fatal]
  - Drug ineffective [Unknown]
  - Cytomegalovirus infection [Fatal]
  - Liver transplant rejection [Recovered/Resolved]
  - Cytomegalovirus infection [Fatal]
  - Hypogammaglobulinaemia [Recovering/Resolving]
  - Pneumocystis jirovecii infection [Fatal]
  - Cough [Fatal]
  - Respiratory distress [Fatal]
  - Influenza like illness [Recovering/Resolving]
  - Superinfection bacterial [Unknown]
  - Pyrexia [Recovering/Resolving]
  - Interstitial lung disease [Fatal]

NARRATIVE: CASE EVENT DATE: 2014
